FAERS Safety Report 5492342-6 (Version None)
Quarter: 2007Q4

REPORT INFORMATION
  Report Type: 
  Country: None (occurrence: None)
  Receive Date: 20071022
  Receipt Date: 20071008
  Transmission Date: 20080405
  Serious: Yes (Other)
  Sender: FDA-Public Use
  Company Number: GB-RANBAXY-2007RR-10570

PATIENT

DRUGS (1)
  1. GABAPENTIN BASICS B 600MG FILMTABLETTEN [Suspect]
     Indication: DEPRESSION
     Dosage: 600 MG, BID
     Route: 048

REACTIONS (1)
  - SICK SINUS SYNDROME [None]
